FAERS Safety Report 23479351 (Version 1)
Quarter: 2024Q1

REPORT INFORMATION
  Report Type: Spontaneous
  Country: US (occurrence: US)
  Receive Date: 20240205
  Receipt Date: 20240205
  Transmission Date: 20240410
  Serious: Yes (Hospitalization, Other)
  Sender: FDA-Public Use
  Company Number: US-GLAXOSMITHKLINE-US2024012899

PATIENT

DRUGS (2)
  1. LAMICTAL [Suspect]
     Active Substance: LAMOTRIGINE
     Indication: Bipolar disorder
     Dosage: 200 MG
     Dates: start: 201201, end: 20230626
  2. VITAMIN E [Concomitant]
     Active Substance: .ALPHA.-TOCOPHEROL
     Indication: Product used for unknown indication
     Dosage: UNK
     Dates: start: 202305

REACTIONS (3)
  - Bipolar disorder [Unknown]
  - Breast cancer [Not Recovered/Not Resolved]
  - Renal transplant [Not Recovered/Not Resolved]

NARRATIVE: CASE EVENT DATE: 20220801
